FAERS Safety Report 17371341 (Version 1)
Quarter: 2020Q1

REPORT INFORMATION
  Report Type: Spontaneous
  Country: US (occurrence: US)
  Receive Date: 20200121
  Receipt Date: 20200121
  Transmission Date: 20200409
  Serious: Yes (Disabling, Other)
  Sender: FDA-Public Use
  Company Number: None

PATIENT
  Age: 80 Year
  Sex: Female

DRUGS (5)
  1. CAPECITABINE 500MG TABLETS [Suspect]
     Active Substance: CAPECITABINE
  2. LORAZEPAM 1MG TAB [Concomitant]
     Active Substance: LORAZEPAM
  3. VITAMIN D. 1000 UNIT. CAP [Concomitant]
  4. ASPIRIN 81MG TAB [Concomitant]
  5. PROVASTATIN 10MG TAB [Concomitant]

REACTIONS (2)
  - Rash [None]
  - Memory impairment [None]

NARRATIVE: CASE EVENT DATE: 20191205
